FAERS Safety Report 16843502 (Version 3)
Quarter: 2021Q2

REPORT INFORMATION
  Report Type: Spontaneous
  Country: US (occurrence: US)
  Receive Date: 20190924
  Receipt Date: 20210506
  Transmission Date: 20210716
  Serious: Yes (Other)
  Sender: FDA-Public Use
  Company Number: US-GILEAD-2019-0429755

PATIENT
  Sex: Female
  Weight: 79.3 kg

DRUGS (28)
  1. FLUCONAZOLE. [Concomitant]
     Active Substance: FLUCONAZOLE
  2. AMOXCLAV [AMOXICILLIN;CLAVULANIC ACID] [Concomitant]
     Active Substance: AMOXICILLIN\CLAVULANIC ACID
  3. ERYTHROMYCIN. [Concomitant]
     Active Substance: ERYTHROMYCIN
  4. TRIUMEQ [Concomitant]
     Active Substance: ABACAVIR SULFATE\DOLUTEGRAVIR SODIUM\LAMIVUDINE
     Indication: HIV INFECTION
     Dosage: UNK
     Route: 065
     Dates: start: 201910
  5. CIPROFLOXACIN. [Concomitant]
     Active Substance: CIPROFLOXACIN
  6. VENTOLIN HFA [Concomitant]
     Active Substance: ALBUTEROL SULFATE
  7. COMPLERA [Suspect]
     Active Substance: EMTRICITABINE\RILPIVIRINE HYDROCHLORIDE\TENOFOVIR DISOPROXIL FUMARATE
     Indication: HIV INFECTION
     Dosage: UNK
     Route: 048
     Dates: start: 2011, end: 20200105
  8. COMPLERA [Suspect]
     Active Substance: EMTRICITABINE\RILPIVIRINE HYDROCHLORIDE\TENOFOVIR DISOPROXIL FUMARATE
     Dosage: UNK
     Route: 048
     Dates: start: 201207, end: 20200105
  9. VITAMIN D2 [Concomitant]
     Active Substance: ERGOCALCIFEROL
  10. HYDROCODONE [Concomitant]
     Active Substance: HYDROCODONE
  11. ACZONE [DAPSONE] [Concomitant]
  12. CARAFATE [Concomitant]
     Active Substance: SUCRALFATE
  13. OMEPRAZOLE. [Concomitant]
     Active Substance: OMEPRAZOLE
  14. METRONIDAZOLE. [Concomitant]
     Active Substance: METRONIDAZOLE
  15. PROMETHAZINE ? CODEINE [CODEINE PHOSPHATE;PROMETHAZINE HYDROCHLORIDE] [Concomitant]
  16. IBUPROFEN. [Concomitant]
     Active Substance: IBUPROFEN
  17. ROXICET [Concomitant]
     Active Substance: ACETAMINOPHEN\OXYCODONE HYDROCHLORIDE
  18. LEVOFLOXACIN. [Concomitant]
     Active Substance: LEVOFLOXACIN
  19. ONDANSETRON [Concomitant]
     Active Substance: ONDANSETRON
  20. AMOXICILLIN. [Concomitant]
     Active Substance: AMOXICILLIN
  21. BACLOFEN. [Concomitant]
     Active Substance: BACLOFEN
  22. VALACYCLOVIR [Concomitant]
     Active Substance: VALACYCLOVIR HYDROCHLORIDE
  23. CLINDAMYCIN. [Concomitant]
     Active Substance: CLINDAMYCIN
  24. ATRALIN [TRETINOIN] [Concomitant]
  25. CARISOPRODOL. [Concomitant]
     Active Substance: CARISOPRODOL
  26. OXAPROZIN. [Concomitant]
     Active Substance: OXAPROZIN
  27. ESTRADIOL. [Concomitant]
     Active Substance: ESTRADIOL
  28. GABAPENTIN. [Concomitant]
     Active Substance: GABAPENTIN

REACTIONS (11)
  - Osteoporosis [Unknown]
  - Emotional distress [Not Recovered/Not Resolved]
  - Anhedonia [Not Recovered/Not Resolved]
  - Economic problem [Not Recovered/Not Resolved]
  - Hand fracture [Unknown]
  - Vomiting [Unknown]
  - Anxiety [Not Recovered/Not Resolved]
  - Pain [Not Recovered/Not Resolved]
  - Nausea [Unknown]
  - Degenerative bone disease [Unknown]
  - Osteopenia [Not Recovered/Not Resolved]

NARRATIVE: CASE EVENT DATE: 2016
